FAERS Safety Report 9263259 (Version 1)
Quarter: 2013Q2

REPORT INFORMATION
  Report Type: Spontaneous
  Country: AU (occurrence: AU)
  Receive Date: 20130430
  Receipt Date: 20130430
  Transmission Date: 20140414
  Serious: Yes (Hospitalization)
  Sender: FDA-Public Use
  Company Number: AU-ABBOTT-13X-008-1082381-00

PATIENT
  Age: 14 Year
  Sex: Male

DRUGS (2)
  1. EPILIM [Suspect]
     Indication: CONVULSION
     Route: 065
     Dates: end: 20130211
  2. TOPAMAX [Suspect]
     Indication: CONVULSION
     Route: 065
     Dates: end: 20130201

REACTIONS (4)
  - Chromaturia [Unknown]
  - Haematuria [Unknown]
  - Suicidal ideation [Unknown]
  - Mood altered [Unknown]
